FAERS Safety Report 25512436 (Version 1)
Quarter: 2025Q3

REPORT INFORMATION
  Report Type: Spontaneous
  Country: AR (occurrence: AR)
  Receive Date: 20250703
  Receipt Date: 20250703
  Transmission Date: 20251021
  Serious: Yes (Hospitalization)
  Sender: JOURNEY MEDICAL CORPORATION
  Company Number: AR-JOURNEY MEDICAL CORPORATION-2025JNY00112

PATIENT
  Age: 13 Year
  Sex: Female

DRUGS (1)
  1. MINOCYCLINE [Suspect]
     Active Substance: MINOCYCLINE HYDROCHLORIDE
     Indication: Acne

REACTIONS (3)
  - Septic shock [Recovered/Resolved]
  - Systemic bacterial infection [Unknown]
  - Drug reaction with eosinophilia and systemic symptoms [Recovered/Resolved]
